FAERS Safety Report 6409507-9 (Version None)
Quarter: 2009Q4

REPORT INFORMATION
  Report Type: 
  Country: None (occurrence: None)
  Receive Date: 20091013
  Receipt Date: 20091005
  Transmission Date: 20100525
  Serious: Yes (Other)
  Sender: FDA-Public Use
  Company Number: A0810296A

PATIENT
  Age: 89 Year
  Sex: Female

DRUGS (1)
  1. METHYLCELLULOSE CAPLET (METHYLCELLULOSE) [Suspect]
     Indication: DRUG USE FOR UNKNOWN INDICATION
     Dosage: ORAL
     Route: 048

REACTIONS (1)
  - RECTAL HAEMORRHAGE [None]
